FAERS Safety Report 4518406-9 (Version None)
Quarter: 2004Q4

REPORT INFORMATION
  Report Type: 
  Country: None (occurrence: None)
  Receive Date: 20041102
  Receipt Date: 20040209
  Transmission Date: 20050328
  Serious: Yes (Other)
  Sender: FDA-Public Use
  Company Number: PHEH2004US00845

PATIENT
  Age: 50 Year
  Sex: Female

DRUGS (4)
  1. LESCOL XL [Suspect]
     Indication: HYPERCHOLESTEROLAEMIA
     Dosage: 80 MG QD ORAL
     Route: 048
     Dates: start: 20030301, end: 20030401
  2. GLUCOVANCE [Concomitant]
  3. ACCUPRIL [Concomitant]
  4. PREMARIN [Concomitant]

REACTIONS (5)
  - ARTHRALGIA [None]
  - ARTHRITIS [None]
  - ASTHENIA [None]
  - MYALGIA [None]
  - TENDONITIS [None]
